FAERS Safety Report 7683841-7 (Version None)
Quarter: 2011Q3

REPORT INFORMATION
  Report Type: 
  Country: None (occurrence: None)
  Receive Date: 20110815
  Receipt Date: 20110810
  Transmission Date: 20111222
  Serious: Yes (Other)
  Sender: FDA-Public Use
  Company Number: US-BAYER-2011-025761

PATIENT
  Age: 24 Year
  Sex: Female
  Weight: 97.052 kg

DRUGS (1)
  1. MIRENA [Suspect]
     Indication: CONTRACEPTION
     Dosage: 20 ?G, CONT
     Route: 015
     Dates: start: 20100601, end: 20110201

REACTIONS (5)
  - POLYMENORRHOEA [None]
  - DEVICE DISLOCATION [None]
  - UTERINE PERFORATION [None]
  - PROCEDURAL COMPLICATION [None]
  - ABDOMINAL PAIN [None]
